FAERS Safety Report 23386899 (Version 2)
Quarter: 2024Q1

REPORT INFORMATION
  Report Type: Spontaneous
  Country: CA (occurrence: None)
  Receive Date: 20240110
  Receipt Date: 20240202
  Transmission Date: 20240410
  Serious: Yes (Other)
  Sender: FDA-Public Use
  Company Number: CA-PFIZER INC-202400005122

PATIENT
  Age: 84 Year
  Sex: Male
  Weight: 80 kg

DRUGS (6)
  1. METHOTREXATE [Suspect]
     Active Substance: METHOTREXATE
     Indication: Product used for unknown indication
  2. INFLECTRA [Concomitant]
     Active Substance: INFLIXIMAB-DYYB
     Indication: Rheumatoid arthritis
     Dates: start: 20220420, end: 20230120
  3. INFLECTRA [Concomitant]
     Active Substance: INFLIXIMAB-DYYB
     Dates: start: 20230517
  4. INFLECTRA [Concomitant]
     Active Substance: INFLIXIMAB-DYYB
     Dates: start: 20230907
  5. INFLECTRA [Concomitant]
     Active Substance: INFLIXIMAB-DYYB
     Dates: start: 20231102
  6. INFLECTRA [Concomitant]
     Active Substance: INFLIXIMAB-DYYB
     Dates: start: 20240102

REACTIONS (3)
  - Uveitis [Not Recovered/Not Resolved]
  - Loss of personal independence in daily activities [Not Recovered/Not Resolved]
  - Dizziness postural [Not Recovered/Not Resolved]
